FAERS Safety Report 7429084-3 (Version None)
Quarter: 2011Q2

REPORT INFORMATION
  Report Type: 
  Country: None (occurrence: None)
  Receive Date: 20110421
  Receipt Date: 20110414
  Transmission Date: 20111010
  Serious: Yes (Hospitalization)
  Sender: FDA-Public Use
  Company Number: US-ROCHE-771843

PATIENT
  Sex: Female
  Weight: 52.1 kg

DRUGS (21)
  1. EFAVIRENZ [Concomitant]
     Dosage: QD, DURATION: 9 MNTH, LAST DOSE: 08 SEP 2010
     Route: 048
  2. VITAMIN D [Concomitant]
  3. CODEINE SUL TAB [Concomitant]
     Indication: PAIN
     Dosage: FREQUENCY:1-2 TABLETS EVERY 6 HOURS
  4. CELEXA [Concomitant]
     Indication: DEPRESSION
     Dosage: QD, DURATION: 5 YR, LAST DOSE: 08 SEP 2010
     Route: 048
  5. LOTRIMIN AF [Concomitant]
     Indication: RASH
     Dosage: FREQUENCY:DAILY, PRN
  6. ENSURE PLUS [Concomitant]
     Dosage: FREQUENCY:1 CAN TWICE DAILY
  7. ABILIFY [Concomitant]
     Indication: DEPRESSION
     Dosage: QD, DURATION: 1 YEAR, LAST DOSE: 08 SEP 2010
     Route: 048
  8. TRAZODONE HCL [Concomitant]
     Indication: SOMNOLENCE
     Dosage: FREQUENCY:1-2 PRN OR AT BEDTIME
  9. PEGINTERFERON ALFA-2A [Suspect]
     Dosage: LAST DOSE: 29 DECEMBER 2010. TEMPORARILY HELD.
     Route: 058
     Dates: start: 20100713
  10. RIBAVIRIN [Suspect]
     Dosage: LAST DOSE:13 APR 2011, TEMPORARILY HELD
     Route: 048
     Dates: start: 20100713, end: 20110414
  11. NITAZOXANIDE [Suspect]
     Dosage: LAST DOSE: 13 APR 2011, TEMPORARILY HELD
     Route: 048
     Dates: start: 20100610, end: 20110414
  12. TRUVADA [Concomitant]
     Dosage: QD, DURATION: 9 MNTH, LAST DOSE: 08 SEP 2010
     Route: 048
  13. PROCHLORPERAZINE MALEATE [Concomitant]
     Indication: NAUSEA
  14. BACTROBAN [Concomitant]
  15. PROCRIT [Concomitant]
     Dosage: DURATION: 3 WEEK, LAST DOSE: 07 SEP 2010
     Route: 030
  16. PROVIGIL [Concomitant]
     Indication: FATIGUE
     Dosage: QD, DURATION: 1 MONTH, LAST DOSE: 08 SEP 2010
     Route: 048
  17. NAPROXEN [Concomitant]
     Indication: PAIN
     Dosage: FREQUENCY:PAIN
  18. PEGINTERFERON ALFA-2A [Suspect]
     Dosage: LAST DOSE: 13 APR 2011, TEMPORARILY HELD
     Route: 058
     Dates: start: 20110119, end: 20110414
  19. CALCIUM/COLECALCIFEROL [Concomitant]
     Indication: OSTEOPENIA
     Dosage: DRUG NAME: CALCIUM-VIT D, DURATION: 4 MNTHS, LAST DOSE: 08 SEP 2010
     Route: 048
  20. NEUPOGEN [Concomitant]
     Indication: NEUTROPENIA
     Dosage: DURATION: 5 WEEK, LAST DOSE: 07 SEP 2010
     Route: 058
  21. HYDROCORTISONE [Concomitant]

REACTIONS (1)
  - HAEMATEMESIS [None]
